FAERS Safety Report 15491199 (Version 1)
Quarter: 2018Q4

REPORT INFORMATION
  Report Type: Spontaneous
  Country: TR (occurrence: TR)
  Receive Date: 20181012
  Receipt Date: 20181012
  Transmission Date: 20190205
  Serious: Yes (Other)
  Sender: FDA-Public Use
  Company Number: TR-SUN PHARMACEUTICAL INDUSTRIES LTD-2018RR-187260

PATIENT
  Age: 63 Year
  Sex: Female

DRUGS (9)
  1. METHIMAZOLE. [Suspect]
     Active Substance: METHIMAZOLE
     Indication: PRODUCT USED FOR UNKNOWN INDICATION
     Dosage: UNK, BID
     Route: 065
     Dates: start: 2016
  2. VEMURAFENIB. [Suspect]
     Active Substance: VEMURAFENIB
     Indication: METASTATIC NEOPLASM
     Dosage: 2 DF, TID
     Route: 065
     Dates: start: 2015
  3. NIVOLUMAB [Suspect]
     Active Substance: NIVOLUMAB
     Indication: DISEASE PROGRESSION
     Dosage: UNK
     Route: 065
     Dates: start: 2016
  4. CLOPIDOGREL [Suspect]
     Active Substance: CLOPIDOGREL BISULFATE
     Indication: AKINESIA
     Dosage: UNK
     Route: 065
     Dates: start: 201710
  5. TEMOZOLOMIDE. [Suspect]
     Active Substance: TEMOZOLOMIDE
     Indication: DISEASE RECURRENCE
     Dosage: TRIED FOR 5 CYCLES
     Dates: end: 2013
  6. HEPARIN [Suspect]
     Active Substance: HEPARIN SODIUM
     Indication: AKINESIA
     Dosage: UNK
     Route: 058
     Dates: start: 201710
  7. ASPIRIN. [Suspect]
     Active Substance: ASPIRIN
     Indication: AKINESIA
     Dosage: UNK
     Route: 065
     Dates: start: 201710
  8. IPILIMUMAB [Suspect]
     Active Substance: IPILIMUMAB
     Indication: PRODUCT USED FOR UNKNOWN INDICATION
     Dosage: UNK
     Route: 065
     Dates: start: 201607, end: 201707
  9. COBIMETINIB. [Suspect]
     Active Substance: COBIMETINIB
     Indication: PRODUCT USED FOR UNKNOWN INDICATION
     Dosage: UNK
     Route: 065
     Dates: start: 2017

REACTIONS (9)
  - Akinesia [Unknown]
  - Acute coronary syndrome [Unknown]
  - Pericarditis [Unknown]
  - Adverse reaction [Unknown]
  - Photosensitivity reaction [Unknown]
  - Disease progression [Unknown]
  - Thrombosis [Unknown]
  - Cardiac tamponade [Unknown]
  - Venous thrombosis [Recovered/Resolved]

NARRATIVE: CASE EVENT DATE: 2016
